FAERS Safety Report 6432710-9 (Version None)
Quarter: 2009Q4

REPORT INFORMATION
  Report Type: 
  Country: None (occurrence: None)
  Receive Date: 20091109
  Receipt Date: 20090924
  Transmission Date: 20100525
  Serious: No
  Sender: FDA-Public Use
  Company Number: US-BAYER-200917923NA

PATIENT
  Age: 84 Year
  Sex: Female

DRUGS (1)
  1. ULTRAVIST 300 [Suspect]
     Indication: SCAN BRAIN
     Dosage: TOTAL DAILY DOSE: 100 ML
     Route: 042
     Dates: start: 20090227, end: 20090227

REACTIONS (2)
  - DIZZINESS [None]
  - PRURITUS [None]
